FAERS Safety Report 8440252-4 (Version None)
Quarter: 2012Q2

REPORT INFORMATION
  Report Type: 
  Country: None (occurrence: None)
  Receive Date: 20120615
  Receipt Date: 20120606
  Transmission Date: 20120825
  Serious: Yes (Death, Other)
  Sender: FDA-Public Use
  Company Number: FR-ROCHE-1076233

PATIENT

DRUGS (1)
  1. MABTHERA [Suspect]
     Indication: SJOGREN'S SYNDROME

REACTIONS (4)
  - INFECTION [None]
  - NEOPLASM MALIGNANT [None]
  - INFUSION RELATED REACTION [None]
  - SERUM SICKNESS-LIKE REACTION [None]
